FAERS Safety Report 14471272 (Version 2)
Quarter: 2025Q2

REPORT INFORMATION
  Report Type: Spontaneous
  Country: US (occurrence: US)
  Receive Date: 20180131
  Receipt Date: 20250401
  Transmission Date: 20250717
  Serious: Yes (Other)
  Sender: ROCHE
  Company Number: US-ROCHE-2061379

PATIENT
  Age: 76 Year
  Sex: Female
  Weight: 72.57 kg

DRUGS (3)
  1. BONIVA [Suspect]
     Active Substance: IBANDRONATE SODIUM
     Indication: Osteoporosis
     Route: 048
     Dates: end: 20171115
  2. FOSAMAX [Concomitant]
     Active Substance: ALENDRONATE SODIUM
  3. ACTONEL [Concomitant]
     Active Substance: RISEDRONATE SODIUM

REACTIONS (11)
  - Osteopenia [Recovering/Resolving]
  - Osteoarthritis [Unknown]
  - Back disorder [Unknown]
  - Diarrhoea [Unknown]
  - Hepatic cirrhosis [Unknown]
  - Illness [Recovering/Resolving]
  - Weight decreased [Recovering/Resolving]
  - Nasopharyngitis [Recovering/Resolving]
  - Cough [Recovering/Resolving]
  - Gingival disorder [Unknown]
  - Bone loss [Unknown]

NARRATIVE: CASE EVENT DATE: 20180101
